FAERS Safety Report 10089394 (Version 2)
Quarter: 2014Q3

REPORT INFORMATION
  Report Type: Spontaneous
  Country: AU (occurrence: None)
  Receive Date: 20140417
  Receipt Date: 20140722
  Transmission Date: 20150326
  Serious: Yes (Hospitalization, Disabling)
  Sender: FDA-Public Use
  Company Number: AUR-APL-2014-04646

PATIENT
  Age: 85 Year
  Sex: Male

DRUGS (2)
  1. TRAMADOL [Suspect]
     Active Substance: TRAMADOL
     Indication: PAIN
     Dates: start: 201203, end: 20120415
  2. AURO-QUETIAPINE 200 [Suspect]
     Active Substance: QUETIAPINE
     Indication: PRODUCT USED FOR UNKNOWN INDICATION
     Dates: start: 2011, end: 20120415

REACTIONS (6)
  - Drug interaction [None]
  - Paranoia [None]
  - Syncope [None]
  - Anxiety [None]
  - Agitation [None]
  - Hallucination, visual [None]

NARRATIVE: CASE EVENT DATE: 201203
